FAERS Safety Report 21417038 (Version 1)
Quarter: 2022Q4

REPORT INFORMATION
  Report Type: Spontaneous
  Country: US (occurrence: US)
  Receive Date: 20221006
  Receipt Date: 20221006
  Transmission Date: 20230112
  Serious: No
  Sender: FDA-Public Use
  Company Number: US-PFIZER INC-202201204030

PATIENT
  Age: 66 Year
  Sex: Male
  Weight: 92.99 kg

DRUGS (1)
  1. PAXLOVID [Suspect]
     Active Substance: NIRMATRELVIR\RITONAVIR
     Indication: COVID-19
     Dosage: 30 TABLETS, STANDARD DOSE HR9
     Dates: start: 20221002, end: 20221004

REACTIONS (3)
  - Dysgeusia [Not Recovered/Not Resolved]
  - Oral mucosal blistering [Not Recovered/Not Resolved]
  - Tongue blistering [Not Recovered/Not Resolved]

NARRATIVE: CASE EVENT DATE: 20221003
